FAERS Safety Report 6655779-5 (Version None)
Quarter: 2010Q1

REPORT INFORMATION
  Report Type: 
  Country: None (occurrence: None)
  Receive Date: 20100329
  Receipt Date: 20100317
  Transmission Date: 20100710
  Serious: Yes (Other)
  Sender: FDA-Public Use
  Company Number: US-ROCHE-692332

PATIENT
  Age: 62 Year
  Sex: Female
  Weight: 67.7 kg

DRUGS (3)
  1. BONIVA [Suspect]
     Indication: OSTEOPENIA
     Route: 048
     Dates: start: 20050101
  2. SYNTHROID [Concomitant]
  3. CALCIUM/VITAMIN D [Concomitant]

REACTIONS (19)
  - ACNE [None]
  - ALOPECIA [None]
  - CORNEAL DISORDER [None]
  - DRY EYE [None]
  - DRY SKIN [None]
  - ERYTHEMA [None]
  - GASTRITIS [None]
  - GASTROINTESTINAL DISORDER [None]
  - INTERVERTEBRAL DISC PROTRUSION [None]
  - JOINT SWELLING [None]
  - MENISCUS LESION [None]
  - MUSCLE SPASMS [None]
  - MYALGIA [None]
  - NAUSEA [None]
  - PRURITUS [None]
  - RASH [None]
  - SKIN BURNING SENSATION [None]
  - SPINAL DISORDER [None]
  - VASCULAR RUPTURE [None]
